FAERS Safety Report 9079157 (Version 1)
Quarter: 2013Q1

REPORT INFORMATION
  Report Type: Report from Study
  Country: US (occurrence: US)
  Receive Date: 20130130
  Receipt Date: 20130130
  Transmission Date: 20140127
  Serious: No
  Sender: FDA-Public Use
  Company Number: US-ABBOTT-12P-163-0958729-00

PATIENT
  Sex: Female
  Weight: 90.8 kg

DRUGS (12)
  1. HUMIRA [Suspect]
     Indication: PSORIATIC ARTHROPATHY
     Route: 058
     Dates: start: 201108
  2. GABAPENTIN [Concomitant]
     Indication: PAIN
     Dosage: AS REQUIRED
     Route: 048
  3. HYDROCODONE [Concomitant]
     Indication: PAIN
     Dosage: 1 TAB IN AM AS NEEDED
  4. HYDROCODONE [Concomitant]
     Dosage: 1 TAB IN PM AS NEEDED
  5. TRAMADOL [Concomitant]
     Indication: PAIN
     Dosage: ONE TAB IN AM
  6. TRAMADOL [Concomitant]
     Dosage: ONE TAB IN PM
  7. NABUMETONE [Concomitant]
     Indication: PAIN
  8. METHYLPREDNISOLONE [Concomitant]
     Indication: MUSCLE SPASMS
     Route: 048
  9. AMBIEN CR [Concomitant]
     Indication: INSOMNIA
  10. LEVOTHYROXINE [Concomitant]
     Indication: THYROID NEOPLASM
     Route: 048
  11. BENICAR [Concomitant]
     Indication: HYPERTENSION
     Route: 048
  12. BACLOFEN [Concomitant]
     Indication: MUSCLE SPASMS
     Dosage: AS REQUIRED
     Route: 048

REACTIONS (8)
  - Herpes zoster [Not Recovered/Not Resolved]
  - Pain [Not Recovered/Not Resolved]
  - Musculoskeletal pain [Not Recovered/Not Resolved]
  - Neck pain [Not Recovered/Not Resolved]
  - Back pain [Not Recovered/Not Resolved]
  - Pain in extremity [Not Recovered/Not Resolved]
  - Injection site bruising [Not Recovered/Not Resolved]
  - Muscle spasms [Not Recovered/Not Resolved]
